FAERS Safety Report 5279067-7 (Version None)
Quarter: 2007Q1

REPORT INFORMATION
  Report Type: 
  Country: None (occurrence: None)
  Receive Date: 20070328
  Receipt Date: 20060817
  Transmission Date: 20070707
  Serious: No
  Sender: FDA-Public Use
  Company Number: US-AMGEN-US171817

PATIENT
  Sex: Male
  Weight: 91.3 kg

DRUGS (2)
  1. NEUPOGEN [Suspect]
     Indication: AGRANULOCYTOSIS
     Route: 058
     Dates: start: 20021002, end: 20041022
  2. NEULASTA [Suspect]
     Indication: AGRANULOCYTOSIS
     Route: 058
     Dates: start: 20041028

REACTIONS (1)
  - THERAPEUTIC RESPONSE DECREASED [None]
